FAERS Safety Report 5087927-5 (Version None)
Quarter: 2006Q3

REPORT INFORMATION
  Report Type: 
  Country: None (occurrence: None)
  Receive Date: 20060822
  Receipt Date: 20060822
  Transmission Date: 20061208
  Serious: Yes (Death, Life-Threatening, Hospitalization)
  Sender: FDA-Public Use
  Company Number: None

PATIENT
  Age: 75 Year
  Sex: Male
  Weight: 99.7913 kg

DRUGS (2)
  1. ALLOPURINOL [Suspect]
     Dosage: 1@DAY
     Dates: start: 20060201, end: 20060402
  2. ALLOPIRINOL [Concomitant]

REACTIONS (8)
  - ABASIA [None]
  - ACTIVITIES OF DAILY LIVING IMPAIRED [None]
  - APHASIA [None]
  - HYPERSENSITIVITY [None]
  - LIFE SUPPORT [None]
  - LUNG DISORDER [None]
  - RENAL DISORDER [None]
  - RESPIRATORY DISORDER [None]
